FAERS Safety Report 24001221 (Version 1)
Quarter: 2024Q2

REPORT INFORMATION
  Report Type: Spontaneous
  Country: TR (occurrence: TR)
  Receive Date: 20240621
  Receipt Date: 20240621
  Transmission Date: 20240716
  Serious: Yes (Other)
  Sender: FDA-Public Use
  Company Number: TR-BAYER-2024A085218

PATIENT
  Age: 40 Year
  Sex: Male

DRUGS (2)
  1. GADOBUTROL [Suspect]
     Active Substance: GADOBUTROL
     Dosage: 5 DF, ONCE
     Dates: end: 2019
  2. GADOPENTETATE DIMEGLUMINE [Suspect]
     Active Substance: GADOPENTETATE DIMEGLUMINE
     Dosage: 1 DF, ONCE
     Dates: start: 2009

REACTIONS (9)
  - Metal poisoning [None]
  - Renal injury [None]
  - Suicide attempt [None]
  - Mental impairment [None]
  - Visual impairment [None]
  - Bone pain [None]
  - Muscle twitching [None]
  - Pulmonary pain [None]
  - Hyperhidrosis [None]

NARRATIVE: CASE EVENT DATE: 20230101
